FAERS Safety Report 12266871 (Version 2)
Quarter: 2016Q2

REPORT INFORMATION
  Report Type: Spontaneous
  Country: US (occurrence: US)
  Receive Date: 20160414
  Receipt Date: 20160620
  Transmission Date: 20160815
  Serious: Yes (Other)
  Sender: FDA-Public Use
  Company Number: US-AMGEN-USASL2016045856

PATIENT
  Age: 61 Year
  Sex: Female

DRUGS (1)
  1. ENBREL [Suspect]
     Active Substance: ETANERCEPT
     Indication: RHEUMATOID ARTHRITIS
     Dosage: 50 MG, QWK
     Route: 065

REACTIONS (7)
  - Drug dispensing error [Unknown]
  - Memory impairment [Unknown]
  - Device issue [Unknown]
  - Discomfort [Unknown]
  - Cerebrovascular accident [Unknown]
  - Musculoskeletal stiffness [Unknown]
  - Drug dose omission [Unknown]
